FAERS Safety Report 9142396 (Version 4)
Quarter: 2013Q2

REPORT INFORMATION
  Report Type: Spontaneous
  Country: US (occurrence: US)
  Receive Date: 20130306
  Receipt Date: 20130610
  Transmission Date: 20140414
  Serious: Yes (Hospitalization)
  Sender: FDA-Public Use
  Company Number: US-BIOGENIDEC-2013BI020672

PATIENT
  Age: 58 Year
  Sex: Male

DRUGS (6)
  1. TYSABRI [Suspect]
     Indication: MULTIPLE SCLEROSIS
     Route: 042
     Dates: start: 20121002, end: 20130122
  2. FLOMAX [Concomitant]
  3. BACLOFEN [Concomitant]
     Indication: MUSCLE SPASTICITY
  4. COZAAR [Concomitant]
     Indication: HYPERTENSION
  5. HCTZ [Concomitant]
     Indication: HYPERTENSION
  6. VITAMIN D3 [Concomitant]

REACTIONS (7)
  - Colostomy [Unknown]
  - Intestinal obstruction [Unknown]
  - Infection [Unknown]
  - Intestinal operation [Unknown]
  - Malaise [Unknown]
  - Abdominal pain [Unknown]
  - Diverticulitis [Unknown]
